FAERS Safety Report 7296860-X (Version None)
Quarter: 2011Q1

REPORT INFORMATION
  Report Type: 
  Country: None (occurrence: None)
  Receive Date: 20110204
  Receipt Date: 20110126
  Transmission Date: 20110831
  Serious: Yes (Hospitalization)
  Sender: FDA-Public Use
  Company Number: DSA_44787_2011

PATIENT
  Sex: Male

DRUGS (8)
  1. CACIT [Concomitant]
  2. SEROQUEL [Concomitant]
  3. MELOXICAM [Concomitant]
  4. WELLBUTRIN [Suspect]
     Indication: DEPRESSION
     Dosage: 150 MG QD, ORAL
     Route: 048
     Dates: start: 20100501, end: 20110111
  5. PANADOL [Concomitant]
  6. DURAGESIC-100 [Concomitant]
  7. SIMVASTATIN [Concomitant]
  8. REMERGON [Concomitant]

REACTIONS (2)
  - HEMIPARESIS [None]
  - EPILEPSY [None]
